FAERS Safety Report 18435370 (Version 1)
Quarter: 2020Q4

REPORT INFORMATION
  Report Type: Spontaneous
  Country: CA (occurrence: CA)
  Receive Date: 20201028
  Receipt Date: 20201028
  Transmission Date: 20210114
  Serious: Yes (Other)
  Sender: FDA-Public Use
  Company Number: CA-009507513-2010CAN009434

PATIENT
  Age: 78 Year
  Sex: Female

DRUGS (8)
  1. INFLIXIMAB [Suspect]
     Active Substance: INFLIXIMAB
     Dosage: 1 EVERY 8 WEEKS
     Route: 065
  2. LATANOPROST. [Suspect]
     Active Substance: LATANOPROST
     Dosage: DOSAGE FORM: SOLUTION OPHTHALMIC
     Route: 065
  3. LATANOPROST. [Suspect]
     Active Substance: LATANOPROST
     Dosage: UNK
     Route: 065
  4. FENTANYL. [Concomitant]
     Active Substance: FENTANYL
     Indication: SEDATION
     Dosage: 100.0 MICROGRAM, QD
  5. MIDAZOLAM HYDROCHLORIDE. [Concomitant]
     Active Substance: MIDAZOLAM HYDROCHLORIDE
     Indication: SEDATION
     Dosage: 5.0 MILLIGRAM, QD
  6. BISOPROLOL [Suspect]
     Active Substance: BISOPROLOL
     Dosage: 2.5 MILLIGRAM, QD (1 EVERY 1 DAY)
     Route: 065
  7. COZAAR [Suspect]
     Active Substance: LOSARTAN POTASSIUM
     Dosage: 50 MILLIGRAM, QD (1 EVERY 1 DAY)
     Route: 065
  8. HYDROCHLOROTHIAZIDE. [Suspect]
     Active Substance: HYDROCHLOROTHIAZIDE
     Dosage: 12.5 MILLIGRAM, QD (1 EVERY 1 DAY)
     Route: 065

REACTIONS (6)
  - Obesity [Unknown]
  - Large intestine polyp [Unknown]
  - Diverticulitis [Unknown]
  - Haemorrhoids [Unknown]
  - Intestinal anastomosis [Unknown]
  - Diarrhoea [Unknown]
